FAERS Safety Report 25472056 (Version 1)
Quarter: 2025Q2

REPORT INFORMATION
  Report Type: Spontaneous
  Country: US (occurrence: US)
  Receive Date: 20250624
  Receipt Date: 20250624
  Transmission Date: 20250716
  Serious: No
  Sender: AMNEAL
  Company Number: US-AMNEAL PHARMACEUTICALS-2025-AMRX-01386

PATIENT
  Age: 69 Year
  Sex: Female
  Weight: 58.957 kg

DRUGS (2)
  1. CARVEDILOL PHOSPHATE [Suspect]
     Active Substance: CARVEDILOL PHOSPHATE
     Indication: Product used for unknown indication
     Dosage: 1 CAPSULES, 1 /DAY (80 MG)
     Route: 048
     Dates: start: 202502, end: 202503
  2. CARVEDILOL PHOSPHATE [Suspect]
     Active Substance: CARVEDILOL PHOSPHATE
     Dosage: 1 CAPSULES, 1 /DAY (80 MG)
     Route: 048
     Dates: start: 202504

REACTIONS (1)
  - Vertigo [Not Recovered/Not Resolved]

NARRATIVE: CASE EVENT DATE: 20250201
